FAERS Safety Report 6988283-5 (Version None)
Quarter: 2010Q3

REPORT INFORMATION
  Report Type: 
  Country: None (occurrence: None)
  Receive Date: 20100916
  Receipt Date: 20100907
  Transmission Date: 20110219
  Serious: Yes (Other)
  Sender: FDA-Public Use
  Company Number: AU-JNJFOC-20100904026

PATIENT
  Age: 33 Year
  Sex: Male

DRUGS (2)
  1. RISPERDAL CONSTA [Suspect]
     Indication: PRODUCT USED FOR UNKNOWN INDICATION
     Route: 030
  2. RISPERDAL QUICKLETS [Suspect]
     Indication: PRODUCT USED FOR UNKNOWN INDICATION
     Dosage: 2 *1MG MORNING AND NIGHT
     Route: 065

REACTIONS (4)
  - CONFUSIONAL STATE [None]
  - DYSKINESIA [None]
  - HALLUCINATION [None]
  - OVERDOSE [None]
